FAERS Safety Report 7845782-1 (Version None)
Quarter: 2011Q4

REPORT INFORMATION
  Report Type: 
  Country: None (occurrence: None)
  Receive Date: 20111025
  Receipt Date: 20111017
  Transmission Date: 20120403
  Serious: Yes (Other)
  Sender: FDA-Public Use
  Company Number: FR-ROCHE-GNE304393

PATIENT
  Sex: Female

DRUGS (4)
  1. LUCENTIS [Suspect]
     Indication: AGE-RELATED MACULAR DEGENERATION
     Dosage: UNK, REGIMEN 1
     Route: 050
     Dates: start: 20070101
  2. LUCENTIS [Suspect]
     Dosage: UNK, REGIMEN 2
     Route: 050
     Dates: start: 20080101
  3. LUCENTIS [Suspect]
     Dosage: UNK, REGIMEN 3
     Route: 050
     Dates: start: 20100326
  4. LUCENTIS [Suspect]
     Dosage: UNK, REGIMEN 4
     Route: 050
     Dates: start: 20100702

REACTIONS (3)
  - DRUG INEFFECTIVE [None]
  - MACULAR DEGENERATION [None]
  - ANXIETY [None]
